FAERS Safety Report 6366976-0 (Version None)
Quarter: 2009Q3

REPORT INFORMATION
  Report Type: 
  Country: None (occurrence: None)
  Receive Date: 20090921
  Receipt Date: 20090915
  Transmission Date: 20100115
  Serious: Yes (Other)
  Sender: FDA-Public Use
  Company Number: JP-JNJFOC-20090900054

PATIENT
  Age: 70 Year
  Sex: Male

DRUGS (10)
  1. DUROTEP MT [Suspect]
     Route: 062
  2. DUROTEP MT [Suspect]
     Route: 062
  3. DUROTEP MT [Suspect]
     Indication: DRUG USE FOR UNKNOWN INDICATION
     Route: 062
  4. TAKEPRON [Concomitant]
     Route: 048
  5. NAUZART [Concomitant]
     Route: 048
  6. PANTOL (PANTHENOL) [Concomitant]
  7. MYSLEE [Concomitant]
     Route: 048
  8. PURSENNID [Concomitant]
     Route: 048
  9. LOXONIN [Concomitant]
  10. MUCOSTA [Concomitant]
     Route: 048

REACTIONS (5)
  - BEDRIDDEN [None]
  - CONFUSIONAL STATE [None]
  - HALLUCINATION [None]
  - OVERDOSE [None]
  - SOMNOLENCE [None]
